FAERS Safety Report 12108967 (Version 1)
Quarter: 2016Q1

REPORT INFORMATION
  Report Type: Spontaneous
  Country: US (occurrence: None)
  Receive Date: 20160222
  Receipt Date: 20160222
  Transmission Date: 20160526
  Serious: Yes (Other)
  Sender: FDA-Public Use
  Company Number: None

PATIENT
  Age: 67 Year
  Sex: Female
  Weight: 77.11 kg

DRUGS (9)
  1. IRON INFUSIONS [Concomitant]
  2. VITAMIN C [Concomitant]
     Active Substance: ASCORBIC ACID
  3. ARMOUR THYROID [Concomitant]
     Active Substance: THYROID, PORCINE
  4. B VITAMINS [Concomitant]
     Active Substance: CYANOCOBALAMIN\DEXPANTHENOL\NIACINAMIDE\PYRIDOXINE HYDROCHLORIDE\RIBOFLAVIN 5^-PHOSPHATE SODIUM\THIAMINE HYDROCHLORIDE\VITAMIN B COMPLEX
  5. VIT D SKIN PATCHES [Concomitant]
  6. DIGESTIVE ENZYMES [Concomitant]
     Active Substance: UNSPECIFIED INGREDIENT
  7. METHYLATED SPIRITS. [Concomitant]
     Active Substance: METHYLATED SPIRITS
  8. GADOLINIUM DYE FOR MRI UNKNOWN UNKNOWN [Suspect]
     Active Substance: GADOLINIUM
     Indication: NUCLEAR MAGNETIC RESONANCE IMAGING
     Dosage: INJECTED IN VEIN FOR MRI
     Route: 042
  9. SELENIUM [Concomitant]
     Active Substance: SELENIUM

REACTIONS (5)
  - Condition aggravated [None]
  - Gait disturbance [None]
  - Abdominal pain [None]
  - Nausea [None]
  - Thyroid disorder [None]

NARRATIVE: CASE EVENT DATE: 20150520
